FAERS Safety Report 13793714 (Version 3)
Quarter: 2018Q1

REPORT INFORMATION
  Report Type: Spontaneous
  Country: US (occurrence: US)
  Receive Date: 20170726
  Receipt Date: 20180202
  Transmission Date: 20180508
  Serious: Yes (Hospitalization, Other)
  Sender: FDA-Public Use
  Company Number: US-PFIZER INC-2017324061

PATIENT
  Sex: Female
  Weight: 68 kg

DRUGS (3)
  1. REVATIO [Suspect]
     Active Substance: SILDENAFIL CITRATE
     Indication: PULMONARY HYPERTENSION
     Dosage: 20 MG, 2X/DAY
     Route: 048
  2. REVATIO [Suspect]
     Active Substance: SILDENAFIL CITRATE
     Indication: CHRONIC OBSTRUCTIVE PULMONARY DISEASE
  3. REVATIO [Suspect]
     Active Substance: SILDENAFIL CITRATE
     Indication: BRONCHITIS CHRONIC

REACTIONS (8)
  - Food poisoning [Unknown]
  - Malaise [Unknown]
  - Clostridium difficile infection [Unknown]
  - Drug hypersensitivity [Unknown]
  - Macular degeneration [Unknown]
  - Urinary tract infection [Unknown]
  - Pneumonia aspiration [Unknown]
  - Product use issue [Unknown]
